FAERS Safety Report 20871348 (Version 1)
Quarter: 2022Q2

REPORT INFORMATION
  Report Type: Spontaneous
  Country: CA (occurrence: CA)
  Receive Date: 20220525
  Receipt Date: 20220525
  Transmission Date: 20220721
  Serious: Yes (Life-Threatening, Hospitalization, Other)
  Sender: FDA-Public Use
  Company Number: None

PATIENT
  Age: 14 Year
  Sex: Female

DRUGS (8)
  1. METHOTREXATE [Suspect]
     Active Substance: METHOTREXATE
     Indication: Acute lymphocytic leukaemia
     Dosage: 1 EVERY 7 DAYS
     Route: 048
  2. MERCAPTOPURINE [Suspect]
     Active Substance: MERCAPTOPURINE
     Indication: Acute lymphocytic leukaemia
     Dosage: 1 EVERY 1 DAYS
     Route: 048
  3. ISAVUCONAZOLE [Concomitant]
     Active Substance: ISAVUCONAZOLE
  4. LEVETIRACETAM [Concomitant]
     Active Substance: LEVETIRACETAM
  5. LEVOTHYROXINE [Concomitant]
     Active Substance: LEVOTHYROXINE
  6. PENTAMIDINE [Concomitant]
     Active Substance: PENTAMIDINE
     Dosage: 300MG/VIAL
  7. PREDNISONE [Concomitant]
     Active Substance: PREDNISONE
  8. VINCRISTINE SULFATE [Concomitant]
     Active Substance: VINCRISTINE SULFATE

REACTIONS (4)
  - Enterovirus test positive [Unknown]
  - Febrile neutropenia [Unknown]
  - Human rhinovirus test positive [Unknown]
  - Vascular device infection [Unknown]
